FAERS Safety Report 10594336 (Version 3)
Quarter: 2015Q2

REPORT INFORMATION
  Report Type: Spontaneous
  Country: US (occurrence: US)
  Receive Date: 20141119
  Receipt Date: 20150619
  Transmission Date: 20150821
  Serious: Yes (Other)
  Sender: FDA-Public Use
  Company Number: US-PFIZER INC-2014315375

PATIENT
  Age: 81 Year
  Sex: Male
  Weight: 95 kg

DRUGS (6)
  1. LYRICA [Suspect]
     Active Substance: PREGABALIN
     Indication: POST HERPETIC NEURALGIA
     Dosage: 50 MG, 3X/DAY
     Route: 048
     Dates: start: 20140715
  2. LYRICA [Suspect]
     Active Substance: PREGABALIN
     Indication: HERPES ZOSTER
     Dosage: 50 MG, 3X/DAY
     Route: 048
     Dates: end: 20150107
  3. LYRICA [Suspect]
     Active Substance: PREGABALIN
     Dosage: WEANED TO DAILY
     Route: 048
     Dates: end: 201412
  4. ZITHROMAX [Suspect]
     Active Substance: AZITHROMYCIN DIHYDRATE
     Indication: TOOTH DISORDER
     Dosage: UNK
     Dates: start: 20141013, end: 20141019
  5. PREGABALIN. [Suspect]
     Active Substance: PREGABALIN
     Indication: POST HERPETIC NEURALGIA
     Dosage: UNK
  6. ZANTAC [Suspect]
     Active Substance: RANITIDINE HYDROCHLORIDE
     Indication: BARRETT^S OESOPHAGUS
     Dosage: UNK, 1X/DAY
     Dates: end: 20150107

REACTIONS (4)
  - Urinary tract infection [Unknown]
  - Temporal arteritis [Unknown]
  - Diplopia [Unknown]
  - Jaw disorder [Not Recovered/Not Resolved]
